FAERS Safety Report 5487354-2 (Version None)
Quarter: 2007Q4

REPORT INFORMATION
  Report Type: 
  Country: None (occurrence: None)
  Receive Date: 20071016
  Receipt Date: 20071010
  Transmission Date: 20080405
  Serious: Yes (Death, Hospitalization)
  Sender: FDA-Public Use
  Company Number: US-ROXANE LABORATORIES, INC-2007-BP-22472RO

PATIENT
  Age: 65 Year
  Sex: Male

DRUGS (9)
  1. CYCLOPHOSPHAMIDE [Suspect]
     Indication: NON-HODGKIN'S LYMPHOMA
     Dates: end: 20041101
  2. PREDNISONE [Suspect]
     Indication: NON-HODGKIN'S LYMPHOMA
     Dates: end: 20041101
  3. CHEMOTHERAPY [Concomitant]
     Indication: NON-HODGKIN'S LYMPHOMA
     Dates: end: 20041101
  4. ITRACONAZOLE [Concomitant]
     Indication: CRYPTOCOCCOSIS
  5. ERTAPENEM [Concomitant]
     Indication: EVIDENCE BASED TREATMENT
  6. TRIMETHORPIM-SULFAMETHOXAZOLE [Concomitant]
     Indication: EVIDENCE BASED TREATMENT
  7. LEVOFLOXACIN [Concomitant]
     Indication: MYCOBACTERIAL INFECTION
  8. CLARITHROMYCIN [Concomitant]
     Indication: MYCOBACTERIAL INFECTION
  9. RIFAMPIN [Concomitant]
     Indication: MYCOBACTERIAL INFECTION

REACTIONS (2)
  - ARTHRITIS BACTERIAL [None]
  - MYCOBACTERIAL INFECTION [None]
